FAERS Safety Report 13496356 (Version 1)
Quarter: 2017Q2

REPORT INFORMATION
  Report Type: Spontaneous
  Country: US (occurrence: US)
  Receive Date: 20170428
  Receipt Date: 20170428
  Transmission Date: 20170830
  Serious: Yes (Life-Threatening)
  Sender: FDA-Public Use
  Company Number: US-ASTRAZENECA-2017SE43188

PATIENT
  Age: 27876 Day
  Sex: Male

DRUGS (27)
  1. BENZONATATE. [Concomitant]
     Active Substance: BENZONATATE
     Route: 048
  2. TIZANIDINE. [Concomitant]
     Active Substance: TIZANIDINE
     Route: 048
  3. VANCOMYCIN [Suspect]
     Active Substance: VANCOMYCIN
     Indication: DIARRHOEA
     Route: 042
     Dates: start: 20161025, end: 20161031
  4. DIAZEPAM. [Concomitant]
     Active Substance: DIAZEPAM
     Dosage: 3.5MG UNKNOWN
     Route: 048
  5. DOCUSATE [Concomitant]
     Active Substance: DOCUSATE
     Dosage: 100.0MG UNKNOWN
     Route: 048
  6. RISPERIDONE. [Concomitant]
     Active Substance: RISPERIDONE
     Route: 048
  7. SIMETHICONE (DIMETHICONE) [Concomitant]
     Active Substance: DIMETHICONE
     Route: 048
  8. ZINC OXIDE. [Concomitant]
     Active Substance: ZINC OXIDE
     Dosage: TWO TIMES A DAY
     Route: 061
  9. TRAZODONE [Concomitant]
     Active Substance: TRAZODONE HYDROCHLORIDE
     Dosage: 1.0DF UNKNOWN
     Route: 048
  10. BISACODYL. [Concomitant]
     Active Substance: BISACODYL
     Dosage: 5.0MG AS REQUIRED
     Route: 048
  11. PREDNISONE. [Concomitant]
     Active Substance: PREDNISONE
     Route: 048
  12. FENTANYL. [Concomitant]
     Active Substance: FENTANYL
     Route: 062
  13. HYDROMORPHONE [Concomitant]
     Active Substance: HYDROMORPHONE
     Dosage: 2.0MG AS REQUIRED
     Route: 048
  14. LACTOBACILLUS ACIDOPHILUS [Concomitant]
     Active Substance: LACTOBACILLUS ACIDOPHILUS
  15. MIRTAZAPINE. [Concomitant]
     Active Substance: MIRTAZAPINE
     Route: 048
  16. ACETAMINOPHEN. [Concomitant]
     Active Substance: ACETAMINOPHEN
     Dosage: 325.0MG AS REQUIRED
     Route: 048
  17. RISPERIDONE. [Concomitant]
     Active Substance: RISPERIDONE
     Route: 048
  18. ASPIRIN. [Concomitant]
     Active Substance: ASPIRIN
     Route: 048
  19. AVODART [Concomitant]
     Active Substance: DUTASTERIDE
     Route: 048
  20. RISPERIDONE. [Concomitant]
     Active Substance: RISPERIDONE
     Route: 048
  21. LOTEPREDNOL [Concomitant]
     Active Substance: LOTEPREDNOL
     Dosage: 0.2%
     Route: 047
  22. QUETIAPINE. [Suspect]
     Active Substance: QUETIAPINE
     Route: 048
  23. MELATONIN [Concomitant]
     Active Substance: MELATONIN
     Route: 048
  24. PREDNISONE. [Concomitant]
     Active Substance: PREDNISONE
     Route: 048
  25. SENNA [Concomitant]
     Active Substance: SENNA LEAF\SENNOSIDES\SENNOSIDES A AND B
     Route: 048
  26. TRAMADOL. [Concomitant]
     Active Substance: TRAMADOL
     Dosage: 1.0DF AS REQUIRED
     Route: 048
  27. PANTOPRAZOLE [Concomitant]
     Active Substance: PANTOPRAZOLE
     Route: 048

REACTIONS (4)
  - Acute kidney injury [Recovered/Resolved]
  - Tinnitus [Not Recovered/Not Resolved]
  - Drug hypersensitivity [Unknown]
  - Ototoxicity [Not Recovered/Not Resolved]

NARRATIVE: CASE EVENT DATE: 20161031
